FAERS Safety Report 24150892 (Version 1)
Quarter: 2024Q3

REPORT INFORMATION
  Report Type: Spontaneous
  Country: US (occurrence: US)
  Receive Date: 20240730
  Receipt Date: 20240730
  Transmission Date: 20241016
  Serious: No
  Sender: DR REDDYS
  Company Number: None

PATIENT
  Age: 34 Year
  Sex: Female

DRUGS (6)
  1. TAMOXIFEN [Suspect]
     Active Substance: TAMOXIFEN
     Indication: Breast cancer female
  2. TAMOXIFEN [Suspect]
     Active Substance: TAMOXIFEN
     Indication: Invasive ductal breast carcinoma
  3. TAMOXIFEN [Suspect]
     Active Substance: TAMOXIFEN
     Indication: Triple positive breast cancer
  4. LEUPROLIDE [Concomitant]
     Active Substance: LEUPROLIDE
     Indication: Breast cancer female
  5. LEUPROLIDE [Concomitant]
     Active Substance: LEUPROLIDE
     Indication: Breast cancer female
  6. LEUPROLIDE [Concomitant]
     Active Substance: LEUPROLIDE
     Indication: Invasive ductal breast carcinoma

REACTIONS (3)
  - Mood swings [Unknown]
  - Somnolence [Unknown]
  - Fatigue [Unknown]
